FAERS Safety Report 24925897 (Version 3)
Quarter: 2025Q3

REPORT INFORMATION
  Report Type: Report from Study
  Country: EU (occurrence: EU)
  Receive Date: 20250205
  Receipt Date: 20250908
  Transmission Date: 20251021
  Serious: Yes (Other)
  Sender: NOVARTIS
  Company Number: EU-002147023-NVSC2023DE026934

PATIENT
  Sex: Male

DRUGS (11)
  1. BEOVU [Suspect]
     Active Substance: BROLUCIZUMAB-DBLL
     Indication: Neovascular age-related macular degeneration
     Route: 031
     Dates: start: 20220519, end: 20220519
  2. BEOVU [Suspect]
     Active Substance: BROLUCIZUMAB-DBLL
     Route: 031
     Dates: start: 20220616, end: 20220616
  3. BEOVU [Suspect]
     Active Substance: BROLUCIZUMAB-DBLL
     Route: 031
     Dates: start: 20220714, end: 20220714
  4. BEOVU [Suspect]
     Active Substance: BROLUCIZUMAB-DBLL
     Route: 031
     Dates: start: 20220901, end: 20220901
  5. BEOVU [Suspect]
     Active Substance: BROLUCIZUMAB-DBLL
     Route: 031
     Dates: start: 20221124, end: 20221124
  6. BEOVU [Suspect]
     Active Substance: BROLUCIZUMAB-DBLL
     Route: 031
     Dates: start: 20230202, end: 20230202
  7. BEOVU [Suspect]
     Active Substance: BROLUCIZUMAB-DBLL
     Route: 031
     Dates: start: 20230420, end: 20230420
  8. BEOVU [Suspect]
     Active Substance: BROLUCIZUMAB-DBLL
     Route: 031
     Dates: start: 20230711, end: 20230711
  9. BEOVU [Suspect]
     Active Substance: BROLUCIZUMAB-DBLL
     Route: 031
     Dates: start: 20231019, end: 20231019
  10. BEOVU [Suspect]
     Active Substance: BROLUCIZUMAB-DBLL
     Route: 031
     Dates: start: 20240208, end: 20240208
  11. BEOVU [Suspect]
     Active Substance: BROLUCIZUMAB-DBLL
     Route: 031
     Dates: start: 20240530, end: 20240530

REACTIONS (7)
  - Retinal artery embolism [Unknown]
  - Retinal ischaemia [Unknown]
  - Retinal artery occlusion [Unknown]
  - Vitreous floaters [Unknown]
  - Visual acuity reduced [Recovered/Resolved]
  - Hypertension [Unknown]
  - Off label use [Unknown]

NARRATIVE: CASE EVENT DATE: 20230110
